FAERS Safety Report 13340125 (Version 1)
Quarter: 2017Q1

REPORT INFORMATION
  Report Type: Spontaneous
  Country: US (occurrence: US)
  Receive Date: 20170316
  Receipt Date: 20170316
  Transmission Date: 20170428
  Serious: No
  Sender: FDA-Public Use
  Company Number: US-TEVA-747794ACC

PATIENT
  Age: 49 Year
  Sex: Female

DRUGS (14)
  1. NAPROSYN [Concomitant]
     Active Substance: NAPROXEN
  2. COPAXONE [Suspect]
     Active Substance: GLATIRAMER ACETATE
     Route: 058
     Dates: start: 201204
  3. ACYCLOVIR. [Concomitant]
     Active Substance: ACYCLOVIR
  4. MULTI-VIT [Concomitant]
     Active Substance: VITAMINS
  5. BENADRYL [Concomitant]
     Active Substance: DIPHENHYDRAMINE HYDROCHLORIDE
  6. FISH OIL [Concomitant]
     Active Substance: FISH OIL
  7. HYOSCYAMINE. [Concomitant]
     Active Substance: HYOSCYAMINE
  8. SPIRIVA [Concomitant]
     Active Substance: TIOTROPIUM BROMIDE MONOHYDRATE
  9. DIPHENHYDRAM [Concomitant]
  10. COPAXONE [Suspect]
     Active Substance: GLATIRAMER ACETATE
     Indication: MULTIPLE SCLEROSIS
     Route: 058
  11. PULMICORT TURBUHALER [Concomitant]
     Active Substance: BUDESONIDE
  12. ZOMIG [Concomitant]
     Active Substance: ZOLMITRIPTAN
  13. GABAPENTIN. [Concomitant]
     Active Substance: GABAPENTIN
  14. WELLBUTRIN [Concomitant]
     Active Substance: BUPROPION HYDROCHLORIDE

REACTIONS (2)
  - Injection site pain [Unknown]
  - Injection site pruritus [Unknown]

NARRATIVE: CASE EVENT DATE: 201204
